FAERS Safety Report 9572778 (Version 3)
Quarter: 2014Q1

REPORT INFORMATION
  Report Type: Report from Study
  Country: US (occurrence: US)
  Receive Date: 20131001
  Receipt Date: 20140107
  Transmission Date: 20141002
  Serious: Yes (Other)
  Sender: FDA-Public Use
  Company Number: US-ABBVIE-13P-163-1151159-00

PATIENT
  Age: 51 Year
  Sex: Female
  Weight: 79.45 kg

DRUGS (7)
  1. HUMIRA [Suspect]
     Indication: PSORIATIC ARTHROPATHY
     Dates: start: 20130713
  2. HUMIRA [Suspect]
     Dosage: REDUCED TO HALF DOSE FOR 2 DOSES
     Dates: start: 2013, end: 2013
  3. HUMIRA [Suspect]
     Dates: start: 2013
  4. METHOTREXATE [Concomitant]
     Indication: PRODUCT USED FOR UNKNOWN INDICATION
  5. SULFASALAZINE [Concomitant]
     Indication: PRODUCT USED FOR UNKNOWN INDICATION
  6. MELOXICAM [Concomitant]
     Indication: PRODUCT USED FOR UNKNOWN INDICATION
  7. TRAMADOL [Concomitant]
     Indication: PRODUCT USED FOR UNKNOWN INDICATION

REACTIONS (17)
  - Aortic aneurysm [Not Recovered/Not Resolved]
  - Heart rate irregular [Recovered/Resolved]
  - Chest pain [Recovering/Resolving]
  - Chest discomfort [Recovering/Resolving]
  - Dyspnoea [Recovered/Resolved]
  - Arthralgia [Recovered/Resolved]
  - Pain in extremity [Recovered/Resolved]
  - Large intestine polyp [Recovered/Resolved]
  - Muscle spasms [Recovered/Resolved]
  - Haematochezia [Not Recovered/Not Resolved]
  - Faeces pale [Not Recovered/Not Resolved]
  - Pain [Recovered/Resolved]
  - Pain in jaw [Unknown]
  - Dizziness [Not Recovered/Not Resolved]
  - Dyspepsia [Not Recovered/Not Resolved]
  - Amnesia [Not Recovered/Not Resolved]
  - Headache [Not Recovered/Not Resolved]
